FAERS Safety Report 9267030 (Version 6)
Quarter: 2014Q1

REPORT INFORMATION
  Report Type: Spontaneous
  Country: US (occurrence: US)
  Receive Date: 20130502
  Receipt Date: 20140311
  Transmission Date: 20141002
  Serious: Yes (Hospitalization, Other)
  Sender: FDA-Public Use
  Company Number: US-009507513-1305USA000198

PATIENT
  Sex: Female
  Weight: 45.35 kg

DRUGS (3)
  1. FOSAMAX [Suspect]
     Indication: OSTEOPOROSIS
     Dosage: UNK
     Route: 048
     Dates: start: 1996, end: 200802
  2. FOSAMAX [Suspect]
     Dosage: 70 MG, QW
     Route: 048
     Dates: end: 200802
  3. ALENDRONATE SODIUM [Suspect]
     Dosage: 70 MG, QW
     Route: 048
     Dates: start: 200802, end: 201004

REACTIONS (46)
  - Femur fracture [Unknown]
  - Closed fracture manipulation [Unknown]
  - Hypoacusis [Unknown]
  - Haemorrhagic anaemia [Unknown]
  - Fracture nonunion [Unknown]
  - Osteoarthritis [Not Recovered/Not Resolved]
  - Osteoarthritis [Unknown]
  - Cataract operation [Unknown]
  - Device failure [Unknown]
  - Vitamin D deficiency [Unknown]
  - Palpitations [Unknown]
  - Mitral valve prolapse [Unknown]
  - Body height decreased [Unknown]
  - Tinnitus [Not Recovered/Not Resolved]
  - Anxiety [Not Recovered/Not Resolved]
  - Somatisation disorder [Unknown]
  - Fatigue [Not Recovered/Not Resolved]
  - Apathy [Unknown]
  - Palpitations [Unknown]
  - Orthostatic intolerance [Unknown]
  - Ear disorder [Unknown]
  - Cerumen removal [Unknown]
  - Cellulitis [Unknown]
  - Hypercholesterolaemia [Unknown]
  - Extrapyramidal disorder [Unknown]
  - Bursitis [Unknown]
  - Hypotension [Unknown]
  - Myocardial ischaemia [Unknown]
  - Tremor [Not Recovered/Not Resolved]
  - Blood pressure [Unknown]
  - Groin pain [Not Recovered/Not Resolved]
  - Osteoarthritis [Not Recovered/Not Resolved]
  - Osteoporosis [Not Recovered/Not Resolved]
  - Bursitis [Unknown]
  - Insomnia [Unknown]
  - Pain [Unknown]
  - Depression [Unknown]
  - Mitral valve incompetence [Unknown]
  - Adverse event [Unknown]
  - Adverse event [Unknown]
  - Asthenia [Not Recovered/Not Resolved]
  - Alopecia [Unknown]
  - Arthralgia [Unknown]
  - Musculoskeletal chest pain [Unknown]
  - Dizziness [Not Recovered/Not Resolved]
  - Alopecia [Not Recovered/Not Resolved]
